FAERS Safety Report 18675140 (Version 1)
Quarter: 2020Q4

REPORT INFORMATION
  Report Type: Spontaneous
  Country: US (occurrence: US)
  Receive Date: 20201229
  Receipt Date: 20201229
  Transmission Date: 20210114
  Serious: Yes (Other)
  Sender: FDA-Public Use
  Company Number: NVSC2020US342031

PATIENT
  Age: 39 Year
  Sex: Female

DRUGS (5)
  1. GEMCITABINE. [Suspect]
     Active Substance: GEMCITABINE
     Indication: SALVAGE THERAPY
  2. HYDROXYCHLOROQUINE [Concomitant]
     Active Substance: HYDROXYCHLOROQUINE
     Indication: RHEUMATOID ARTHRITIS
     Dosage: UNK
     Route: 065
  3. METHYLPREDNISOLONE. [Suspect]
     Active Substance: METHYLPREDNISOLONE
     Indication: LYMPHOPROLIFERATIVE DISORDER
     Dosage: UNK
     Route: 065
  4. METHYLPREDNISOLONE. [Suspect]
     Active Substance: METHYLPREDNISOLONE
     Indication: SALVAGE THERAPY
  5. GEMCITABINE. [Suspect]
     Active Substance: GEMCITABINE
     Indication: LYMPHOPROLIFERATIVE DISORDER
     Dosage: UNK
     Route: 065

REACTIONS (4)
  - Epistaxis [Unknown]
  - Thrombocytopenia [Unknown]
  - Product use in unapproved indication [Unknown]
  - Drug intolerance [Unknown]
